FAERS Safety Report 6750527-2 (Version None)
Quarter: 2010Q2

REPORT INFORMATION
  Report Type: 
  Country: None (occurrence: None)
  Receive Date: 20100528
  Receipt Date: 20100528
  Transmission Date: 20101027
  Serious: Yes (Other)
  Sender: FDA-Public Use
  Company Number: None

PATIENT
  Age: 82 Year
  Sex: Female
  Weight: 63.5036 kg

DRUGS (8)
  1. LISINOPRIL [Suspect]
     Indication: HYPERTENSION
     Dosage: LISINOPRIL 10MG Q DAY P.O.
     Route: 048
     Dates: end: 20080907
  2. NORVASC [Concomitant]
  3. ASPIRIN [Concomitant]
  4. ATENOLOL [Concomitant]
  5. DIAZEPAM [Concomitant]
  6. LEVOTHYROXINE SODIUM [Concomitant]
  7. PRILOSEC [Concomitant]
  8. TRM/HCT [Concomitant]

REACTIONS (2)
  - BLOOD UREA NITROGEN/CREATININE RATIO INCREASED [None]
  - COUGH [None]
